FAERS Safety Report 16846905 (Version 4)
Quarter: 2021Q1

REPORT INFORMATION
  Report Type: Spontaneous
  Country: US (occurrence: US)
  Receive Date: 20190924
  Receipt Date: 20210330
  Transmission Date: 20210419
  Serious: Yes (Hospitalization, Other)
  Sender: FDA-Public Use
  Company Number: US-GILEAD-2019-0429338

PATIENT
  Age: 46 Year
  Sex: Male
  Weight: 58.96 kg

DRUGS (72)
  1. VIREAD [Suspect]
     Active Substance: TENOFOVIR DISOPROXIL FUMARATE
     Dosage: UNK
     Route: 048
     Dates: start: 202012
  2. ATRIPLA [Suspect]
     Active Substance: EFAVIRENZ\EMTRICITABINE\TENOFOVIR DISOPROXIL FUMARATE
     Indication: HIV INFECTION
     Dosage: UNK
     Route: 048
     Dates: start: 2004
  3. CYCLOBENZAPRINE. [Concomitant]
     Active Substance: CYCLOBENZAPRINE
  4. SENOKOT?S [Concomitant]
     Active Substance: DOCUSATE SODIUM\SENNOSIDES
  5. PROTONIX [OMEPRAZOLE] [Concomitant]
     Active Substance: OMEPRAZOLE
  6. GLUCAGON. [Concomitant]
     Active Substance: GLUCAGON
  7. VIREAD [Suspect]
     Active Substance: TENOFOVIR DISOPROXIL FUMARATE
     Indication: HIV INFECTION
     Dosage: UNK
     Route: 048
     Dates: start: 2004
  8. ISENTRESS [Concomitant]
     Active Substance: RALTEGRAVIR POTASSIUM
  9. AMOXICILLIN. [Concomitant]
     Active Substance: AMOXICILLIN
  10. AMBIEN [Concomitant]
     Active Substance: ZOLPIDEM TARTRATE
  11. ALBUTEROL [SALBUTAMOL] [Concomitant]
     Active Substance: ALBUTEROL
  12. TEMAZEPAM. [Concomitant]
     Active Substance: TEMAZEPAM
  13. ENOXAPARIN [Concomitant]
     Active Substance: ENOXAPARIN
  14. COMBIVENT RESPIMAT [Concomitant]
     Active Substance: ALBUTEROL SULFATE\IPRATROPIUM BROMIDE
  15. BACTRIM [Concomitant]
     Active Substance: SULFAMETHOXAZOLE\TRIMETHOPRIM
  16. LORAZEPAM. [Concomitant]
     Active Substance: LORAZEPAM
  17. CALCIUM ACETATE. [Concomitant]
     Active Substance: CALCIUM ACETATE
  18. AMLODIPINE [Concomitant]
     Active Substance: AMLODIPINE BESYLATE
  19. TRANDATE [Concomitant]
     Active Substance: LABETALOL HYDROCHLORIDE
  20. ABACAVIR. [Concomitant]
     Active Substance: ABACAVIR
  21. TRUVADA [Suspect]
     Active Substance: EMTRICITABINE\TENOFOVIR DISOPROXIL FUMARATE
     Indication: HIV INFECTION
     Dosage: UNK
     Route: 048
     Dates: start: 2004
  22. ODEFSEY [Concomitant]
     Active Substance: EMTRICITABINE\RILPIVIRINE HYDROCHLORIDE\TENOFOVIR ALAFENAMIDE FUMARATE
  23. IBUPROFEN. [Concomitant]
     Active Substance: IBUPROFEN
  24. KETOROLAC [Concomitant]
     Active Substance: KETOROLAC TROMETHAMINE
  25. ALPRAZOLAM. [Concomitant]
     Active Substance: ALPRAZOLAM
  26. BUSPIRONE [Concomitant]
     Active Substance: BUSPIRONE HYDROCHLORIDE
  27. MELOXICAM. [Concomitant]
     Active Substance: MELOXICAM
  28. BUPROPION. [Concomitant]
     Active Substance: BUPROPION
  29. LISINOPRIL AND HYDROCHLOROTHIAZIDE [Concomitant]
     Active Substance: HYDROCHLOROTHIAZIDE\LISINOPRIL
  30. CLONAZEPAM. [Concomitant]
     Active Substance: CLONAZEPAM
  31. HALDOL [Concomitant]
     Active Substance: HALOPERIDOL
  32. PHENERGAN [Concomitant]
     Active Substance: PROMETHAZINE HYDROCHLORIDE
  33. TIVICAY [Concomitant]
     Active Substance: DOLUTEGRAVIR SODIUM
  34. COMPLERA [Suspect]
     Active Substance: EMTRICITABINE\RILPIVIRINE HYDROCHLORIDE\TENOFOVIR DISOPROXIL FUMARATE
     Dosage: UNK
     Route: 048
     Dates: start: 20180102, end: 201808
  35. RALTEGRAVIR. [Concomitant]
     Active Substance: RALTEGRAVIR
  36. QUETIAPINE. [Concomitant]
     Active Substance: QUETIAPINE
  37. SERTRALINE [Concomitant]
     Active Substance: SERTRALINE HYDROCHLORIDE
  38. PROMETHAZINE ? DEXTROMETHORPHANE [Concomitant]
  39. ONDANSETRON [Concomitant]
     Active Substance: ONDANSETRON
  40. INSULIN ASPART [Concomitant]
     Active Substance: INSULIN ASPART
  41. COMPLERA [Suspect]
     Active Substance: EMTRICITABINE\RILPIVIRINE HYDROCHLORIDE\TENOFOVIR DISOPROXIL FUMARATE
     Dosage: UNK
     Route: 065
     Dates: start: 20180102, end: 20180531
  42. NYSTATIN. [Concomitant]
     Active Substance: NYSTATIN
  43. DIALYSATE [Concomitant]
  44. ENOXAPARIN [Concomitant]
     Active Substance: ENOXAPARIN
  45. RANITIDINE. [Concomitant]
     Active Substance: RANITIDINE
  46. LABETALOL [Concomitant]
     Active Substance: LABETALOL\LABETALOL HYDROCHLORIDE
  47. CEFTRIAXONE. [Concomitant]
     Active Substance: CEFTRIAXONE
  48. OLANZAPINE. [Concomitant]
     Active Substance: OLANZAPINE
  49. RISPERIDONE. [Concomitant]
     Active Substance: RISPERIDONE
  50. ZYPREXA [Concomitant]
     Active Substance: OLANZAPINE
  51. TRUVADA [Suspect]
     Active Substance: EMTRICITABINE\TENOFOVIR DISOPROXIL FUMARATE
     Dosage: UNK
     Route: 065
     Dates: start: 20120207, end: 20171206
  52. EPIVIR [Concomitant]
     Active Substance: LAMIVUDINE
  53. CLARITHROMYCIN. [Concomitant]
     Active Substance: CLARITHROMYCIN
  54. SIMETHICONE (DIMETHICONE) [Concomitant]
     Active Substance: DIMETHICONE
  55. HALOPERIDOL. [Concomitant]
     Active Substance: HALOPERIDOL
  56. PANTOPRAZOLE [Concomitant]
     Active Substance: PANTOPRAZOLE
  57. SODIUM CHLORIDE. [Concomitant]
     Active Substance: SODIUM CHLORIDE
  58. KLONOPIN [Concomitant]
     Active Substance: CLONAZEPAM
  59. ATRIPLA [Suspect]
     Active Substance: EFAVIRENZ\EMTRICITABINE\TENOFOVIR DISOPROXIL FUMARATE
     Dosage: UNK
     Route: 048
     Dates: start: 2006
  60. COMPLERA [Suspect]
     Active Substance: EMTRICITABINE\RILPIVIRINE HYDROCHLORIDE\TENOFOVIR DISOPROXIL FUMARATE
     Indication: HIV INFECTION
     Dosage: UNK
     Route: 048
     Dates: start: 2004
  61. KALETRA [Concomitant]
     Active Substance: LOPINAVIR\RITONAVIR
  62. LAMIVUDINE. [Concomitant]
     Active Substance: LAMIVUDINE
  63. LEVOFLOXACIN. [Concomitant]
     Active Substance: LEVOFLOXACIN
  64. ACYCLOVIR [ACICLOVIR] [Concomitant]
     Active Substance: ACYCLOVIR
  65. ACETAMINOPHEN. [Concomitant]
     Active Substance: ACETAMINOPHEN
  66. OXYCODONE [Concomitant]
     Active Substance: OXYCODONE
  67. CLONIDINE. [Concomitant]
     Active Substance: CLONIDINE
  68. SULFAMETHOXAZOLE AND TRIMETHOPRIM [Concomitant]
     Active Substance: SULFAMETHOXAZOLE\TRIMETHOPRIM
  69. BENADRYL [Concomitant]
     Active Substance: DIPHENHYDRAMINE HYDROCHLORIDE
  70. TRAMADOL. [Concomitant]
     Active Substance: TRAMADOL
  71. DIPHENHYDRAMINE. [Concomitant]
     Active Substance: DIPHENHYDRAMINE
  72. ATIVAN [Concomitant]
     Active Substance: LORAZEPAM

REACTIONS (9)
  - Depression [Not Recovered/Not Resolved]
  - Chronic kidney disease [Not Recovered/Not Resolved]
  - Emotional distress [Not Recovered/Not Resolved]
  - Economic problem [Not Recovered/Not Resolved]
  - Pain [Not Recovered/Not Resolved]
  - Acute kidney injury [Not Recovered/Not Resolved]
  - Anxiety [Not Recovered/Not Resolved]
  - Anhedonia [Not Recovered/Not Resolved]
  - Nephrogenic anaemia [Not Recovered/Not Resolved]

NARRATIVE: CASE EVENT DATE: 2013
